FAERS Safety Report 9693967 (Version 1)
Quarter: 2013Q4

REPORT INFORMATION
  Report Type: Spontaneous
  Country: US (occurrence: US)
  Receive Date: 20131118
  Receipt Date: 20131118
  Transmission Date: 20140711
  Serious: No
  Sender: FDA-Public Use
  Company Number: US-TEVA-443393USA

PATIENT
  Age: 52 Year
  Sex: Female
  Weight: 66.74 kg

DRUGS (1)
  1. QNASL [Suspect]
     Indication: SINUS DISORDER
     Dosage: 1 SPRAY IN EACH NOSTRIL TWICE A DAY
     Route: 045
     Dates: end: 201310

REACTIONS (3)
  - Malaise [Not Recovered/Not Resolved]
  - Blood pressure increased [Unknown]
  - Off label use [Unknown]
